FAERS Safety Report 17100619 (Version 1)
Quarter: 2019Q4

REPORT INFORMATION
  Report Type: Spontaneous
  Country: IR (occurrence: IR)
  Receive Date: 20191202
  Receipt Date: 20191202
  Transmission Date: 20200122
  Serious: Yes (Hospitalization)
  Sender: FDA-Public Use
  Company Number: IR-EPIC PHARMA LLC-2019EPC00342

PATIENT
  Age: 34 Year
  Sex: Male

DRUGS (1)
  1. METHADONE [Suspect]
     Active Substance: METHADONE HYDROCHLORIDE
     Dosage: 40 MG, ONCE
     Route: 048

REACTIONS (4)
  - Renal failure [Recovered/Resolved]
  - Altered state of consciousness [Recovered/Resolved]
  - Deafness [Not Recovered/Not Resolved]
  - Rhabdomyolysis [Recovered/Resolved]
